FAERS Safety Report 9049405 (Version 1)
Quarter: 2013Q1

REPORT INFORMATION
  Report Type: Spontaneous
  Country: CH (occurrence: CH)
  Receive Date: 20130205
  Receipt Date: 20130205
  Transmission Date: 20140127
  Serious: Yes (Hospitalization, Other)
  Sender: FDA-Public Use
  Company Number: PHHY2013CH009065

PATIENT
  Sex: Male

DRUGS (5)
  1. RITALIN LA [Suspect]
     Dosage: 12 DF, DAILY (12-14 DF PER DAY)
  2. AMPHETAMINE [Concomitant]
  3. EFEXOR ER [Concomitant]
     Dosage: 3 DF, DAILY (3 IN THE MORNING)
  4. TRITTICO [Concomitant]
     Dosage: 1 DF, DAILY (1 AT NIGHT)
  5. SOLIAN [Concomitant]
     Dosage: 1 DF, DAILY (1 AT NIGHT)

REACTIONS (9)
  - Mania [Unknown]
  - Persecutory delusion [Unknown]
  - Incorrect dose administered [Unknown]
  - Psychotic disorder [Unknown]
  - Agitation [Unknown]
  - Aggression [Unknown]
  - Dreamy state [Unknown]
  - Indifference [Unknown]
  - Wrong technique in drug usage process [Unknown]
